FAERS Safety Report 16112184 (Version 1)
Quarter: 2019Q1

REPORT INFORMATION
  Report Type: Spontaneous
  Country: FR (occurrence: FR)
  Receive Date: 20190325
  Receipt Date: 20190325
  Transmission Date: 20190418
  Serious: Yes (Hospitalization)
  Sender: FDA-Public Use
  Company Number: FR-JNJFOC-20190326711

PATIENT
  Age: 73 Year
  Sex: Male
  Weight: 79.7 kg

DRUGS (8)
  1. IRINOTECAN MEDAC [Suspect]
     Active Substance: IRINOTECAN
     Indication: ADENOCARCINOMA OF COLON
     Route: 041
     Dates: end: 20190104
  2. PREDNISONE. [Concomitant]
     Active Substance: PREDNISONE
     Route: 065
  3. CALCIUM FOLINATE [Concomitant]
     Active Substance: LEUCOVORIN CALCIUM
     Route: 065
  4. ZYTIGA [Suspect]
     Active Substance: ABIRATERONE ACETATE
     Indication: PROSTATE CANCER METASTATIC
     Dosage: STRENGTH: 250 MG
     Route: 048
     Dates: start: 20181112, end: 20190117
  5. FLUOROURACILE ACCORD [Suspect]
     Active Substance: FLUOROURACIL
     Indication: ADENOCARCINOMA OF COLON
     Route: 041
     Dates: end: 20190104
  6. SOLU-MEDROL [Concomitant]
     Active Substance: METHYLPREDNISOLONE SODIUM SUCCINATE
     Route: 065
  7. ATROPINE SULFATE. [Concomitant]
     Active Substance: ATROPINE SULFATE
     Route: 065
  8. ONDANSETRON [Concomitant]
     Active Substance: ONDANSETRON
     Route: 065

REACTIONS (3)
  - Hypokalaemia [Recovered/Resolved]
  - Fanconi syndrome [Recovered/Resolved]
  - Blood phosphorus decreased [Recovered/Resolved]

NARRATIVE: CASE EVENT DATE: 20190115
